FAERS Safety Report 8013314-3 (Version None)
Quarter: 2011Q4

REPORT INFORMATION
  Report Type: 
  Country: None (occurrence: None)
  Receive Date: 20111229
  Receipt Date: 20111215
  Transmission Date: 20120403
  Serious: Yes (Hospitalization)
  Sender: FDA-Public Use
  Company Number: PHFR2011GB007217

PATIENT
  Sex: Female

DRUGS (12)
  1. QUININE ^NM PHARMA^ [Concomitant]
     Dosage: 300 MG, UNK
  2. TRIHEXYPHENIDYL HCL [Concomitant]
     Dosage: 5 MG, UNK
  3. CLOZARIL [Suspect]
     Indication: SCHIZOAFFECTIVE DISORDER
     Dosage: 200 MG, UNK
  4. DIAZEPAM [Concomitant]
     Indication: AGITATION
  5. ACETAMINOPHEN [Concomitant]
     Dosage: 1 G, QDS
  6. DIAZEPAM [Concomitant]
     Indication: ANXIETY
     Dosage: 7.5 MG, UNK
     Route: 048
  7. SENNA [Concomitant]
     Indication: CONSTIPATION
     Dosage: 22.5 MG, UNK
     Route: 048
  8. ASPIRIN [Concomitant]
     Dosage: 75 MG, UNK
  9. BRUFEN ^ABBOTT^ [Concomitant]
  10. DULOXETIME HYDROCHLORIDE [Concomitant]
     Indication: DEPRESSION
     Dosage: 90 MG, UNK
     Route: 048
  11. ATORVASTATIN [Concomitant]
     Indication: HYPERCHOLESTEROLAEMIA
     Dosage: 40 MG, UNK
  12. LANSOPRAZOLE [Concomitant]
     Indication: DYSPEPSIA
     Dosage: 30 MG, UNK

REACTIONS (7)
  - DEHYDRATION [None]
  - BLOOD PARATHYROID HORMONE INCREASED [None]
  - DIARRHOEA [None]
  - BLOOD CALCIUM DECREASED [None]
  - VITAMIN D DECREASED [None]
  - DUODENITIS [None]
  - VOMITING [None]
